FAERS Safety Report 8985754 (Version 2)
Quarter: 2013Q1

REPORT INFORMATION
  Report Type: Spontaneous
  Country: ES (occurrence: ES)
  Receive Date: 20121226
  Receipt Date: 20130315
  Transmission Date: 20140127
  Serious: Yes (Death)
  Sender: FDA-Public Use
  Company Number: ES-ELI_LILLY_AND_COMPANY-ES201212005541

PATIENT
  Age: 60 Year
  Sex: Male
  Weight: 70 kg

DRUGS (13)
  1. FORSTEO [Suspect]
     Indication: OSTEOPOROSIS
     Dosage: 20 UG, QD
     Route: 058
     Dates: start: 20111213, end: 20121209
  2. ATROVENT [Concomitant]
     Dosage: UNK, EVERY 4 HRS
     Route: 055
  3. BUDENASE [Concomitant]
     Dosage: UNK, EVERY 4 HRS
     Route: 055
  4. VENTOLIN                                /SCH/ [Concomitant]
     Dosage: UNK, EVERY 4 HRS
     Route: 055
  5. TARGIN [Concomitant]
     Indication: PAIN
     Dosage: UNK, BID
     Route: 048
  6. ASTEROL [Concomitant]
     Indication: PAIN
     Dosage: UNK, QD
     Route: 048
  7. DIGOXIN [Concomitant]
     Indication: CARDIAC DISORDER
     Dosage: UNK, 5/W
     Route: 048
  8. MANIDON [Concomitant]
     Indication: CARDIAC DISORDER
     Dosage: UNK, BID
     Route: 048
  9. MASDIL [Concomitant]
     Indication: CARDIAC DISORDER
     Dosage: UNK, BID
     Route: 048
  10. SEGURIL [Concomitant]
     Indication: DIURETIC THERAPY
     Dosage: UNK, QD
     Route: 048
  11. ALDACTONE [Concomitant]
     Indication: ANTIBIOTIC THERAPY
     Dosage: UNK, QD
     Route: 048
  12. ENALAPRIL [Concomitant]
     Dosage: UNK, QD
     Route: 048
  13. ORFIDAL [Concomitant]
     Indication: SLEEP DISORDER
     Dosage: UNK, QD
     Route: 048

REACTIONS (1)
  - Death [Fatal]
